FAERS Safety Report 4764573-1 (Version None)
Quarter: 2005Q3

REPORT INFORMATION
  Report Type: 
  Country: None (occurrence: None)
  Receive Date: 20050906
  Receipt Date: 20050825
  Transmission Date: 20060218
  Serious: Yes (Other)
  Sender: FDA-Public Use
  Company Number: US-2005-000199

PATIENT
  Sex: Female

DRUGS (1)
  1. MIRENA [Suspect]
     Dosage: 20 UG/DAY, CONT, INTRA-UTERNIE
     Route: 015
     Dates: start: 20041210

REACTIONS (2)
  - GENITAL HAEMORRHAGE [None]
  - HEPATIC ENZYME INCREASED [None]
